FAERS Safety Report 20769370 (Version 1)
Quarter: 2022Q2

REPORT INFORMATION
  Report Type: Spontaneous
  Country: US (occurrence: US)
  Receive Date: 20220429
  Receipt Date: 20220429
  Transmission Date: 20220721
  Serious: Yes (Other)
  Sender: FDA-Public Use
  Company Number: US-BRISTOL-MYERS SQUIBB COMPANY-2022-024648

PATIENT
  Age: 67 Year
  Sex: Male

DRUGS (4)
  1. REVLIMID [Suspect]
     Active Substance: LENALIDOMIDE
     Indication: Bone cancer
     Dosage: TAKE 1 CAPSULE BY MOUTH DAILY ON DAYS 1 THROUGH 14 OF 21 DAY  CYCLE
     Route: 048
     Dates: start: 20220121
  2. AMLODIPINE [Concomitant]
     Active Substance: AMLODIPINE BESYLATE
     Indication: Product used for unknown indication
     Route: 065
  3. BISOPROLOL [Concomitant]
     Active Substance: BISOPROLOL
     Indication: Product used for unknown indication
     Dosage: 10 (UNSPECIFIED UNIT)
     Route: 065
  4. HYDROCHLOROTHIAZIDE [Concomitant]
     Active Substance: HYDROCHLOROTHIAZIDE
     Indication: Product used for unknown indication
     Dosage: 6.25 (UNSPECIFIED UNIT)
     Route: 065

REACTIONS (2)
  - Adverse event [Unknown]
  - Unintentional use for unapproved indication [Unknown]
